FAERS Safety Report 5463831-5 (Version None)
Quarter: 2007Q3

REPORT INFORMATION
  Report Type: 
  Country: None (occurrence: None)
  Receive Date: 20070919
  Receipt Date: 20070904
  Transmission Date: 20080115
  Serious: Yes (Hospitalization)
  Sender: FDA-Public Use
  Company Number: 1-15301327

PATIENT
  Age: 28 Year
  Sex: Male

DRUGS (2)
  1. IBUPROFEN [Suspect]
     Indication: INTENTIONAL OVERDOSE
     Dosage: ORAL
     Route: 048
  2. ACETAMINOPHEN [Suspect]
     Indication: INTENTIONAL OVERDOSE
     Dosage: 250 G INGESTION, ORAL
     Route: 048

REACTIONS (17)
  - BLOOD LACTIC ACID INCREASED [None]
  - COAGULOPATHY [None]
  - DRUG LEVEL INCREASED [None]
  - DRUG TOXICITY [None]
  - GASTROINTESTINAL NECROSIS [None]
  - HAEMODIALYSIS [None]
  - HAEMODYNAMIC INSTABILITY [None]
  - HEPATIC FAILURE [None]
  - HEPATIC NECROSIS [None]
  - HYPOTENSION [None]
  - INTENTIONAL OVERDOSE [None]
  - INTERNATIONAL NORMALISED RATIO INCREASED [None]
  - INTESTINAL HAEMORRHAGE [None]
  - LIVER TRANSPLANT [None]
  - METABOLIC ACIDOSIS [None]
  - RENAL FAILURE ACUTE [None]
  - RHABDOMYOLYSIS [None]
